FAERS Safety Report 9017388 (Version 2)
Quarter: 2013Q1

REPORT INFORMATION
  Report Type: Spontaneous
  Country: US (occurrence: US)
  Receive Date: 20130117
  Receipt Date: 20130211
  Transmission Date: 20140127
  Serious: No
  Sender: FDA-Public Use
  Company Number: US-PFIZER INC-2013020481

PATIENT
  Age: 58 Year
  Sex: Female
  Weight: 103 kg

DRUGS (3)
  1. LYRICA [Suspect]
     Indication: PAIN IN EXTREMITY
     Dosage: 150 MG, 3X/DAY
     Dates: start: 2012, end: 20130102
  2. ATENOLOL/CHLORTHALIDONE [Concomitant]
     Indication: HYPERTENSION
     Dosage: 50-25 MG, DAILY
  3. WARFARIN [Concomitant]
     Indication: PULMONARY THROMBOSIS
     Dosage: 2.5 MG, DAILY EXCEPT WEDNESDAY

REACTIONS (1)
  - Pain [Not Recovered/Not Resolved]
